FAERS Safety Report 6586328-8 (Version None)
Quarter: 2010Q1

REPORT INFORMATION
  Report Type: 
  Country: None (occurrence: None)
  Receive Date: 20100217
  Receipt Date: 20100204
  Transmission Date: 20100710
  Serious: Yes (Hospitalization)
  Sender: FDA-Public Use
  Company Number: CA-GENENTECH-298093

PATIENT
  Sex: Male
  Weight: 73.5 kg

DRUGS (1)
  1. XOLAIR [Suspect]
     Indication: ASTHMA
     Dosage: 225 MG, Q2W
     Route: 058
     Dates: start: 20060407

REACTIONS (9)
  - ASTHMA [None]
  - ATRIAL FIBRILLATION [None]
  - BREATH SOUNDS ABNORMAL [None]
  - HEAD INJURY [None]
  - MYOCARDIAL INFARCTION [None]
  - PHARYNGITIS [None]
  - PNEUMONIA [None]
  - SINUSITIS [None]
  - WHEEZING [None]
